FAERS Safety Report 7777639-9 (Version None)
Quarter: 2011Q3

REPORT INFORMATION
  Report Type: 
  Country: None (occurrence: None)
  Receive Date: 20110922
  Receipt Date: 20110912
  Transmission Date: 20111222
  Serious: Yes (Other)
  Sender: FDA-Public Use
  Company Number: 2006S1003179

PATIENT
  Age: 65 Year
  Sex: Female
  Weight: 70.3075 kg

DRUGS (11)
  1. CELEBREX [Concomitant]
  2. ESTRADIOL [Concomitant]
  3. DESIPRAMINE HCL [Concomitant]
  4. TEMAZEPAM [Concomitant]
  5. PHOSPHOSODA GINGER LEMON [Suspect]
     Indication: COLONOSCOPY
     Dosage: 90 ML; TOTAL; PO
     Route: 048
     Dates: start: 20050824, end: 20050825
  6. ALLEGRA [Concomitant]
  7. DULCOLAX [Suspect]
     Indication: COLONOSCOPY
     Dosage: 4 UNIT; TOTAL; PO
     Route: 048
     Dates: start: 20050824, end: 20050824
  8. HALFLYTELY [Suspect]
     Indication: COLONOSCOPY
     Dosage: PO
     Route: 048
     Dates: start: 20050824, end: 20050824
  9. LIPITOR [Concomitant]
  10. TYLENOL (CAPLET) [Concomitant]
  11. GLUCOAMINE [Concomitant]

REACTIONS (8)
  - RENAL FAILURE CHRONIC [None]
  - WRONG TECHNIQUE IN DRUG USAGE PROCESS [None]
  - ASTHENIA [None]
  - TRANSIENT ISCHAEMIC ATTACK [None]
  - LOSS OF CONSCIOUSNESS [None]
  - MALAISE [None]
  - DEHYDRATION [None]
  - TREATMENT NONCOMPLIANCE [None]
